FAERS Safety Report 5677177-3 (Version None)
Quarter: 2008Q1

REPORT INFORMATION
  Report Type: 
  Country: None (occurrence: None)
  Receive Date: 20080324
  Receipt Date: 20080319
  Transmission Date: 20080703
  Serious: Yes (Hospitalization, Disabling)
  Sender: FDA-Public Use
  Company Number: B0513389A

PATIENT
  Age: 33 Year
  Sex: Female

DRUGS (1)
  1. TRIZIVIR [Suspect]
     Indication: HIV INFECTION
     Route: 048
     Dates: start: 20070329, end: 20071119

REACTIONS (11)
  - ABDOMINAL PAIN UPPER [None]
  - COUGH [None]
  - DYSAESTHESIA [None]
  - DYSPEPSIA [None]
  - GENERAL PHYSICAL HEALTH DETERIORATION [None]
  - LACTIC ACIDOSIS [None]
  - MUSCULAR WEAKNESS [None]
  - NAUSEA [None]
  - NEUROPATHY PERIPHERAL [None]
  - SENSATION OF HEAVINESS [None]
  - VOMITING [None]
